FAERS Safety Report 18045848 (Version 2)
Quarter: 2020Q3

REPORT INFORMATION
  Report Type: Spontaneous
  Country: US (occurrence: US)
  Receive Date: 20200720
  Receipt Date: 20200821
  Transmission Date: 20201103
  Serious: Yes (Hospitalization)
  Sender: FDA-Public Use
  Company Number: US-MYLANLABS-2020M1065551

PATIENT
  Sex: Male

DRUGS (23)
  1. PREDNISONE. [Suspect]
     Active Substance: PREDNISONE
     Indication: PAIN MANAGEMENT
     Dosage: 60 MILLIGRAM, QD
     Route: 065
  2. NUBAIN [Suspect]
     Active Substance: NALBUPHINE HYDROCHLORIDE
     Indication: PAIN MANAGEMENT
     Dosage: UNK, TOTAL
     Route: 065
  3. OXCARBAZEPINE. [Suspect]
     Active Substance: OXCARBAZEPINE
     Indication: PAIN MANAGEMENT
     Dosage: 150 MILLIGRAM, BID
     Route: 065
  4. METHOCARBAMOL. [Suspect]
     Active Substance: METHOCARBAMOL
     Indication: PAIN MANAGEMENT
     Dosage: 500 MILLIGRAM, TID THRICE DAILY; AS NEEDED
     Route: 065
  5. LIDOPROFEN [Suspect]
     Active Substance: KETAMINE\KETOPROFEN\LIDOCAINE
     Indication: PAIN MANAGEMENT
     Dosage: UNK UNK, QD
     Route: 061
  6. HYDROCODONE BITARTRATE W/PARACETAMOL [Concomitant]
     Active Substance: ACETAMINOPHEN\HYDROCODONE BITARTRATE
     Indication: PAIN MANAGEMENT
     Dosage: THRICE DAILY AS NEEDED FOR MORE THAN 2 YEARS
     Route: 065
  7. LIDOCAINE. [Concomitant]
     Active Substance: LIDOCAINE
     Indication: PAIN MANAGEMENT
     Dosage: ONCE DAILY
     Route: 065
  8. TRAMADOL. [Suspect]
     Active Substance: TRAMADOL
     Indication: PAIN MANAGEMENT
     Dosage: 50 MILLIGRAM, Q8H
     Route: 048
  9. LEVETIRACETAM. [Suspect]
     Active Substance: LEVETIRACETAM
     Indication: PAIN MANAGEMENT
     Dosage: 500 MILLIGRAM TID THRICE DAILY
     Route: 065
  10. PREGABALIN. [Suspect]
     Active Substance: PREGABALIN
     Indication: PAIN MANAGEMENT
     Dosage: 100 MILLIGRAM, QD
     Route: 065
  11. CYCLOBENZAPRINE. [Suspect]
     Active Substance: CYCLOBENZAPRINE
     Indication: PAIN MANAGEMENT
     Dosage: 10 MILLIGRAM, Q8H
     Route: 065
  12. METHYLPREDNISOLONE. [Suspect]
     Active Substance: METHYLPREDNISOLONE
     Indication: PAIN MANAGEMENT
     Dosage: 1 GRAM,
     Route: 065
  13. MAGNESIUM [Suspect]
     Active Substance: MAGNESIUM
     Indication: PAIN MANAGEMENT
     Dosage: 2 GRAM
     Route: 065
  14. INDOMETACIN [Suspect]
     Active Substance: INDOMETHACIN
     Indication: PAIN MANAGEMENT
     Dosage: 25 MILLIGRAM, TID THRICE DAILY
     Route: 065
  15. ONDANSETRON [Suspect]
     Active Substance: ONDANSETRON
     Dosage: 4 MILLIGRAM AS A COCKTAIL WITH DIPHENHYDRAMINE AND PARACETAMOL
     Route: 065
  16. OXCARBAZEPINE. [Suspect]
     Active Substance: OXCARBAZEPINE
     Dosage: 300 MILLIGRAM, BID
     Route: 065
  17. GABAPENTIN. [Suspect]
     Active Substance: GABAPENTIN
     Indication: PAIN MANAGEMENT
     Dosage: 600 MILLIGRAM, TID THRICE DAILY FOR MORE THAN 1 MONTH
     Route: 065
  18. METHYLPREDNISOLONE. [Suspect]
     Active Substance: METHYLPREDNISOLONE
     Dosage: 1 MILLIGRAM, ONE?TIME
     Route: 042
  19. MORPHINE [Suspect]
     Active Substance: MORPHINE
     Indication: PAIN MANAGEMENT
     Dosage: 4 MILLIGRAM
     Route: 065
  20. PARACETAMOL [Suspect]
     Active Substance: ACETAMINOPHEN
     Indication: PAIN MANAGEMENT
     Dosage: 650 MILLIGRAM, Q6H AS A COCKTAIL WITH ONDANSETRON AND DIPHENHYDRAMIE
     Route: 065
  21. DIPHENHYDRAMINE. [Suspect]
     Active Substance: DIPHENHYDRAMINE
     Indication: PAIN MANAGEMENT
     Dosage: 12.5 MILLIGRAM AS A COCKTAIL WITH ONDANSETRON AND PARACETAMOL
     Route: 065
  22. ONDANSETRON [Suspect]
     Active Substance: ONDANSETRON
     Indication: PAIN MANAGEMENT
     Dosage: 4 MILLIGRAM
     Route: 065
  23. NORTRIPTYLINE [Concomitant]
     Active Substance: NORTRIPTYLINE
     Indication: PAIN MANAGEMENT
     Dosage: 10 MILLIGRAM, QD AT BEDTIME
     Route: 065

REACTIONS (1)
  - Drug ineffective [Unknown]
